FAERS Safety Report 5789248-1 (Version None)
Quarter: 2008Q2

REPORT INFORMATION
  Report Type: 
  Country: None (occurrence: None)
  Receive Date: 20080625
  Receipt Date: 20080625
  Transmission Date: 20081010
  Serious: Yes (Other)
  Sender: FDA-Public Use
  Company Number: None

PATIENT
  Age: 51 Year
  Sex: Female
  Weight: 93.441 kg

DRUGS (2)
  1. AVANDIA [Suspect]
     Dosage: 1-4 YEARS
  2. NEURONTIN [Concomitant]

REACTIONS (5)
  - CARDIAC DISORDER [None]
  - CEREBROVASCULAR ACCIDENT [None]
  - LOWER LIMB DEFORMITY [None]
  - OSTEOPENIA [None]
  - SPINAL FRACTURE [None]
